FAERS Safety Report 4365285-9 (Version None)
Quarter: 2004Q2

REPORT INFORMATION
  Report Type: 
  Country: None (occurrence: None)
  Receive Date: 20040525
  Receipt Date: 20040127
  Transmission Date: 20050107
  Serious: No
  Sender: FDA-Public Use
  Company Number: PHEH2004US01262

PATIENT
  Age: 66 Year
  Sex: Female

DRUGS (4)
  1. ZELNORM [Suspect]
     Indication: ABDOMINAL DISTENSION
     Dosage: 6 MG, BID, ORAL
     Route: 048
     Dates: end: 20040124
  2. ZELNORM [Suspect]
     Indication: ABDOMINAL DISTENSION
     Dosage: 6 MG, BID, ORAL
     Route: 048
     Dates: start: 20031201
  3. GLUCOVANCE [Concomitant]
  4. ACCUPRIL [Concomitant]

REACTIONS (5)
  - ARTHRALGIA [None]
  - BACK PAIN [None]
  - DIARRHOEA [None]
  - DRUG INEFFECTIVE [None]
  - HYPOAESTHESIA [None]
